FAERS Safety Report 21247468 (Version 1)
Quarter: 2022Q3

REPORT INFORMATION
  Report Type: Spontaneous
  Country: US (occurrence: US)
  Receive Date: 20220824
  Receipt Date: 20220824
  Transmission Date: 20221026
  Serious: No
  Sender: FDA-Public Use
  Company Number: US-PFIZER INC-202201075924

PATIENT
  Age: 4 Year
  Sex: Female

DRUGS (6)
  1. ENBREL [Suspect]
     Active Substance: ETANERCEPT
     Indication: Psoriasis
     Dosage: UNK
     Route: 065
  2. ADALIMUMAB [Concomitant]
     Active Substance: ADALIMUMAB
     Indication: Psoriasis
     Dosage: UNK
  3. CANAKINUMAB [Concomitant]
     Active Substance: CANAKINUMAB
     Indication: Psoriasis
     Dosage: UNK
  4. TOCILIZUMAB [Concomitant]
     Active Substance: TOCILIZUMAB
     Indication: Psoriasis
     Dosage: UNK
  5. GOLIMUMAB [Concomitant]
     Active Substance: GOLIMUMAB
     Indication: Psoriasis
     Dosage: UNK
  6. USTEKINUMAB [Concomitant]
     Active Substance: USTEKINUMAB
     Indication: Psoriasis
     Dosage: UNK

REACTIONS (1)
  - Off label use [Unknown]
